FAERS Safety Report 13774477 (Version 1)
Quarter: 2017Q3

REPORT INFORMATION
  Report Type: Spontaneous
  Country: PL (occurrence: PL)
  Receive Date: 20170721
  Receipt Date: 20170721
  Transmission Date: 20171127
  Serious: Yes (Other)
  Sender: FDA-Public Use
  Company Number: PL-BAYER-2017-133105

PATIENT
  Age: 80 Year
  Sex: Female

DRUGS (8)
  1. NEXAVAR [Suspect]
     Active Substance: SORAFENIB
     Indication: HEPATOCELLULAR CARCINOMA
     Dosage: UNK
     Dates: start: 20130620, end: 20130816
  2. NEXAVAR [Suspect]
     Active Substance: SORAFENIB
     Indication: HEPATOCELLULAR CARCINOMA
     Dosage: UNK
     Dates: start: 20121011, end: 2012
  3. NEXAVAR [Suspect]
     Active Substance: SORAFENIB
     Indication: HEPATOCELLULAR CARCINOMA
     Dosage: UNK
     Dates: start: 20120727, end: 20120921
  4. NEXAVAR [Suspect]
     Active Substance: SORAFENIB
     Indication: HEPATOCELLULAR CARCINOMA
     Dosage: UNK
     Dates: start: 20121206
  5. NEXAVAR [Suspect]
     Active Substance: SORAFENIB
     Indication: HEPATOCELLULAR CARCINOMA
     Dosage: UNK
     Dates: start: 20130103
  6. NEXAVAR [Suspect]
     Active Substance: SORAFENIB
     Indication: HEPATOCELLULAR CARCINOMA
     Dosage: UNK
     Dates: start: 20140425
  7. NEXAVAR [Suspect]
     Active Substance: SORAFENIB
     Indication: HEPATOCELLULAR CARCINOMA
     Dosage: DOSE REDUCTION OF 50 %
     Dates: start: 20121108, end: 2012
  8. NEXAVAR [Suspect]
     Active Substance: SORAFENIB
     Indication: HEPATOCELLULAR CARCINOMA
     Dosage: UNK
     Dates: start: 20140328

REACTIONS (17)
  - Palmar-plantar erythrodysaesthesia syndrome [Recovered/Resolved]
  - Hepatomegaly [None]
  - Weight decreased [None]
  - Vascular pain [None]
  - Hypokalaemia [None]
  - Dermatitis [Recovered/Resolved]
  - Wound secretion [Recovered/Resolved]
  - Leukopenia [None]
  - Skin ulcer [None]
  - General physical health deterioration [None]
  - Decreased appetite [None]
  - Muscle spasms [None]
  - Palmar-plantar erythrodysaesthesia syndrome [Recovered/Resolved]
  - Rectal haemorrhage [None]
  - Thrombocytopenia [None]
  - Pruritus [None]
  - Abdominal pain [None]

NARRATIVE: CASE EVENT DATE: 20120921
